FAERS Safety Report 4909931-7 (Version None)
Quarter: 2006Q1

REPORT INFORMATION
  Report Type: 
  Country: None (occurrence: None)
  Receive Date: 20060208
  Receipt Date: 20060130
  Transmission Date: 20060701
  Serious: Yes (Death, Hospitalization)
  Sender: FDA-Public Use
  Company Number: 1998-09-0017

PATIENT
  Age: 5 Year
  Sex: Male

DRUGS (5)
  1. TEMODAL [Suspect]
     Indication: GLIOMA
     Dosage: 145 MG/DAY, 120 MG/DAY, 85 MG/DAY ORAL
     Route: 048
     Dates: start: 19970505, end: 19970630
  2. TEMODAL [Suspect]
     Indication: GLIOMA
     Dosage: 145 MG/DAY, 120 MG/DAY, 85 MG/DAY ORAL
     Route: 048
     Dates: start: 19970804, end: 19970901
  3. TEMODAL [Suspect]
     Indication: GLIOMA
     Dosage: 145 MG/DAY, 120 MG/DAY, 85 MG/DAY ORAL
     Route: 048
     Dates: start: 19971003, end: 19980331
  4. PREDNISOLONE [Concomitant]
  5. RADIATION THERAPY [Concomitant]

REACTIONS (4)
  - BRAIN STEM GLIOMA [None]
  - CHONDROMA [None]
  - MALIGNANT NEOPLASM PROGRESSION [None]
  - OSTEOLYSIS [None]
